FAERS Safety Report 17671175 (Version 1)
Quarter: 2020Q2

REPORT INFORMATION
  Report Type: Spontaneous
  Country: US (occurrence: US)
  Receive Date: 20200415
  Receipt Date: 20200415
  Transmission Date: 20200713
  Serious: No
  Sender: FDA-Public Use
  Company Number: None

PATIENT
  Sex: Male

DRUGS (1)
  1. FAMOTIDINE 40MG/5ML 0.4ML BID [Suspect]
     Active Substance: FAMOTIDINE

REACTIONS (1)
  - Drug ineffective [None]
